FAERS Safety Report 4568412-3 (Version None)
Quarter: 2005Q1

REPORT INFORMATION
  Report Type: 
  Country: None (occurrence: None)
  Receive Date: 20050131
  Receipt Date: 20050121
  Transmission Date: 20050727
  Serious: Yes (Other)
  Sender: FDA-Public Use
  Company Number: 2005-01-1572

PATIENT
  Age: 63 Year
  Sex: Female

DRUGS (2)
  1. INTRON A [Suspect]
     Indication: HEPATITIS C
     Dosage: 3 MU INTRAMUSCULAR
     Route: 030
     Dates: start: 20040818, end: 20050114
  2. REBETOL [Suspect]
     Indication: HEPATITIS C
     Dosage: 400 MG ORAL
     Route: 048
     Dates: start: 20040818, end: 20050114

REACTIONS (2)
  - HAEMOPTYSIS [None]
  - PLATELET COUNT DECREASED [None]
